FAERS Safety Report 11698316 (Version 1)
Quarter: 2015Q4

REPORT INFORMATION
  Report Type: Spontaneous
  Country: US (occurrence: US)
  Receive Date: 20151104
  Receipt Date: 20151104
  Transmission Date: 20160304
  Serious: No
  Sender: FDA-Public Use
  Company Number: US-ELI_LILLY_AND_COMPANY-US201012006361

PATIENT
  Sex: Female

DRUGS (2)
  1. FORTEO [Suspect]
     Active Substance: TERIPARATIDE
     Indication: OSTEOPOROSIS
     Dosage: UNK, DAILY (1/D)
  2. FORTEO [Suspect]
     Active Substance: TERIPARATIDE
     Dosage: UNK, DAILY (1/D)

REACTIONS (10)
  - Headache [Unknown]
  - Musculoskeletal stiffness [Unknown]
  - Pollakiuria [Unknown]
  - Heart rate increased [Unknown]
  - Weight increased [Unknown]
  - Asthenia [Unknown]
  - Muscle spasms [Unknown]
  - Urine output increased [Unknown]
  - Dysuria [Unknown]
  - Flatulence [Unknown]
